FAERS Safety Report 4946312-4 (Version None)
Quarter: 2006Q1

REPORT INFORMATION
  Report Type: 
  Country: None (occurrence: None)
  Receive Date: 20060316
  Receipt Date: 20060316
  Transmission Date: 20060701
  Serious: Yes (Hospitalization, Disabling)
  Sender: FDA-Public Use
  Company Number: None

PATIENT
  Age: 45 Year
  Sex: Female

DRUGS (2)
  1. PROMETHAZINE [Suspect]
     Indication: HYPOKALAEMIA
     Dosage: 25 MG 2 TIMES IV
     Route: 042
     Dates: start: 20051231, end: 20051231
  2. POTASSIUM CHLORIDE [Suspect]
     Indication: ABDOMINAL PAIN
     Dosage: 20 MEQ 2 TIMES IV (2 DOSES ONLY)
     Route: 042
     Dates: start: 20051231, end: 20051231

REACTIONS (1)
  - PHLEBITIS [None]
